FAERS Safety Report 5544841-6 (Version None)
Quarter: 2007Q4

REPORT INFORMATION
  Report Type: 
  Country: None (occurrence: None)
  Receive Date: 20071210
  Receipt Date: 20070115
  Transmission Date: 20080405
  Serious: No
  Sender: FDA-Public Use
  Company Number: US-AMGEN-KDL207111

PATIENT
  Sex: Female

DRUGS (4)
  1. ENBREL [Suspect]
     Indication: RHEUMATOID ARTHRITIS
     Route: 058
     Dates: start: 20061001
  2. ENBREL [Suspect]
     Indication: DRUG USE FOR UNKNOWN INDICATION
  3. METHOTREXATE [Concomitant]
     Dates: start: 20060101
  4. PLAQUENIL [Concomitant]
     Dates: start: 20060101

REACTIONS (3)
  - INJECTION SITE IRRITATION [None]
  - INJECTION SITE REACTION [None]
  - THERAPEUTIC RESPONSE DELAYED [None]
